FAERS Safety Report 22058203 (Version 1)
Quarter: 2023Q1

REPORT INFORMATION
  Report Type: Spontaneous
  Country: CN (occurrence: None)
  Receive Date: 20230303
  Receipt Date: 20230303
  Transmission Date: 20230417
  Serious: Yes (Other)
  Sender: FDA-Public Use
  Company Number: 2023A050107

PATIENT
  Age: 2966 Week
  Sex: Female
  Weight: 57 kg

DRUGS (2)
  1. OSIMERTINIB MESYLATE [Suspect]
     Active Substance: OSIMERTINIB MESYLATE
     Indication: Lung neoplasm malignant
     Route: 048
     Dates: start: 20230203, end: 20230220
  2. OSIMERTINIB MESYLATE [Suspect]
     Active Substance: OSIMERTINIB MESYLATE
     Indication: Metastases to central nervous system
     Route: 048
     Dates: start: 20230203, end: 20230220

REACTIONS (2)
  - Dermatitis allergic [Recovering/Resolving]
  - Impetigo [Unknown]

NARRATIVE: CASE EVENT DATE: 20230220
